FAERS Safety Report 4704814-X (Version None)
Quarter: 2005Q3

REPORT INFORMATION
  Report Type: 
  Country: None (occurrence: None)
  Receive Date: 20050701
  Receipt Date: 20040629
  Transmission Date: 20060218
  Serious: No
  Sender: FDA-Public Use
  Company Number: US-GLAXOSMITHKLINE-A0516458A

PATIENT
  Age: 50 Year
  Sex: Female

DRUGS (4)
  1. PARNATE [Suspect]
     Indication: DEPRESSION
     Dosage: 100MG PER DAY
     Route: 048
     Dates: start: 20030401
  2. METHADONE HCL [Concomitant]
  3. PREMARIN [Concomitant]
  4. ZANTAC [Concomitant]

REACTIONS (1)
  - DRUG INEFFECTIVE [None]
